FAERS Safety Report 8921125 (Version 3)
Quarter: 2013Q1

REPORT INFORMATION
  Report Type: Report from Study
  Country: IT (occurrence: IT)
  Receive Date: 20121121
  Receipt Date: 20130128
  Transmission Date: 20140127
  Serious: Yes (Death, Other)
  Sender: FDA-Public Use
  Company Number: IT-OTSUKA-EU-2012-10259

PATIENT
  Sex: Male
  Weight: 50 kg

DRUGS (14)
  1. SAMSCA [Suspect]
     Indication: INAPPROPRIATE ANTIDIURETIC HORMONE SECRETION
     Dosage: 15 MG MILLIGRAM(S), DAILY DOSE
     Route: 048
     Dates: start: 20121001, end: 20121001
  2. SAMSCA [Suspect]
     Dosage: 7.5 MG MILLIGRAM(S), DAILY DOSE
     Route: 048
     Dates: start: 20121003, end: 20121012
  3. SAMSCA [Suspect]
     Dosage: UNK MG MILLIGRAM(S), DAILY DOSE
     Route: 048
     Dates: start: 20121013, end: 20121111
  4. SAMSCA [Suspect]
     Dosage: 7.5 MG MILLIGRAM(S), DAILY DOSE
     Route: 048
     Dates: start: 20121022, end: 20121111
  5. SALINE [Concomitant]
     Indication: HYPONATRAEMIA
     Dosage: 103 MEQ, DAILY DOSE
     Dates: start: 20120928, end: 20120928
  6. SALINE [Concomitant]
     Dosage: 308 MEQ, DAILY DOSE
     Dates: start: 20120929, end: 20120929
  7. SALINE [Concomitant]
     Dosage: 387 MEQ, DAILY DOSE
     Dates: start: 20120930, end: 20120930
  8. SALINE [Concomitant]
     Dosage: 115 MEQ, DAILY DOSE
     Dates: start: 20121001, end: 20121001
  9. ZYLORIC [Concomitant]
     Indication: HYPERURICAEMIA
     Dosage: 300 MG MILLIGRAM(S), DAILY DOSE
     Route: 048
     Dates: start: 2012
  10. XANAX [Concomitant]
     Indication: SEDATIVE THERAPY
     Dosage: 1 MG MILLIGRAM(S), DAILY DOSE
     Route: 048
     Dates: start: 2012
  11. FRAGMIN [Concomitant]
     Indication: ANTICOAGULANT THERAPY
     Dosage: 5000 IU, DAILY DOSE
     Route: 058
     Dates: start: 2012
  12. OMEPRAZOLE [Concomitant]
     Indication: GASTRIC DISORDER
     Dosage: 40 MG MILLIGRAM(S), DAILY DOSE
     Route: 042
     Dates: start: 20120929
  13. SOLDESAM [Concomitant]
     Indication: ANTIINFLAMMATORY THERAPY
     Dosage: 8 MG MILLIGRAM(S), DAILY DOSE
     Route: 030
     Dates: start: 2012
  14. TRANSTEC [Concomitant]
     Indication: ANALGESIC THERAPY
     Dosage: 70 MG MILLIGRAM(S), DAILY DOSE
     Route: 062
     Dates: start: 2012

REACTIONS (6)
  - Disease progression [Fatal]
  - Rapid correction of hyponatraemia [Recovering/Resolving]
  - Haemoglobin decreased [Not Recovered/Not Resolved]
  - Alanine aminotransferase increased [Not Recovered/Not Resolved]
  - Gamma-glutamyltransferase increased [Not Recovered/Not Resolved]
  - Wrong technique in drug usage process [Unknown]
